FAERS Safety Report 7533958-2 (Version None)
Quarter: 2011Q2

REPORT INFORMATION
  Report Type: 
  Country: None (occurrence: None)
  Receive Date: 20110608
  Receipt Date: 20060703
  Transmission Date: 20111010
  Serious: Yes (Death, Other)
  Sender: FDA-Public Use
  Company Number: PHMT2005CA00847

PATIENT
  Sex: Male

DRUGS (1)
  1. CLOZAPINE [Suspect]
     Dosage: UNK, UNK
     Route: 048
     Dates: start: 19970929

REACTIONS (5)
  - LUNG NEOPLASM MALIGNANT [None]
  - DEATH [None]
  - AGRANULOCYTOSIS [None]
  - NEUTROPENIA [None]
  - WHITE BLOOD CELL COUNT DECREASED [None]
